FAERS Safety Report 7764051-1 (Version None)
Quarter: 2011Q3

REPORT INFORMATION
  Report Type: 
  Country: None (occurrence: None)
  Receive Date: 20110921
  Receipt Date: 20110919
  Transmission Date: 20111222
  Serious: No
  Sender: FDA-Public Use
  Company Number: US-PFIZER INC-2011222657

PATIENT
  Sex: Male

DRUGS (3)
  1. XANAX [Suspect]
     Dosage: UNK
     Route: 048
     Dates: start: 20110901
  2. AMBIEN [Suspect]
     Indication: SLEEP DISORDER
     Dosage: UNK
     Route: 048
  3. XANAX [Suspect]
     Dosage: 1 MG, 3X/DAY
     Route: 048

REACTIONS (2)
  - OVERDOSE [None]
  - SOMNAMBULISM [None]
